FAERS Safety Report 25653125 (Version 2)
Quarter: 2025Q3

REPORT INFORMATION
  Report Type: Spontaneous
  Country: US (occurrence: US)
  Receive Date: 20250807
  Receipt Date: 20250828
  Transmission Date: 20251021
  Serious: No
  Sender: ELI LILLY AND COMPANY
  Company Number: US-ELI_LILLY_AND_COMPANY-US202508003608

PATIENT
  Age: 74 Year
  Sex: Female

DRUGS (2)
  1. TERIPARATIDE [Suspect]
     Active Substance: TERIPARATIDE
     Indication: Product used for unknown indication
     Route: 065
     Dates: start: 202504
  2. TERIPARATIDE [Suspect]
     Active Substance: TERIPARATIDE
     Route: 065

REACTIONS (3)
  - Injection site pain [Unknown]
  - Drug dose omission by device [Unknown]
  - Incorrect product administration duration [Unknown]
